FAERS Safety Report 25227694 (Version 1)
Quarter: 2025Q2

REPORT INFORMATION
  Report Type: Spontaneous
  Country: US (occurrence: US)
  Receive Date: 20250423
  Receipt Date: 20250423
  Transmission Date: 20250716
  Serious: No
  Sender: MERCK SHARP & DOHME LLC
  Company Number: US-009507513-2278636

PATIENT
  Age: 11 Year
  Sex: Male

DRUGS (3)
  1. POSACONAZOLE [Suspect]
     Active Substance: POSACONAZOLE
     Indication: Scedosporium infection
     Route: 048
  2. CASPOFUNGIN [Suspect]
     Active Substance: CASPOFUNGIN
     Indication: Scedosporium infection
  3. TERBINAFINE [Concomitant]
     Active Substance: TERBINAFINE
     Indication: Scedosporium infection

REACTIONS (1)
  - Product use in unapproved indication [Unknown]
